FAERS Safety Report 4594244-6 (Version None)
Quarter: 2005Q1

REPORT INFORMATION
  Report Type: 
  Country: None (occurrence: None)
  Receive Date: 20050301
  Receipt Date: 20040812
  Transmission Date: 20050727
  Serious: No
  Sender: FDA-Public Use
  Company Number: US-GLAXOSMITHKLINE-A0521970A

PATIENT
  Age: 61 Year
  Sex: Male

DRUGS (6)
  1. VALTREX [Suspect]
     Dosage: 500MG TWICE PER DAY
     Route: 048
  2. PREVACID [Concomitant]
  3. CARDURA [Concomitant]
  4. ZOCOR [Concomitant]
  5. TENORMIN [Concomitant]
  6. ALTACE [Concomitant]

REACTIONS (2)
  - HEADACHE [None]
  - PYREXIA [None]
